FAERS Safety Report 5587131-8 (Version None)
Quarter: 2008Q1

REPORT INFORMATION
  Report Type: 
  Country: None (occurrence: None)
  Receive Date: 20080107
  Receipt Date: 20071219
  Transmission Date: 20080703
  Serious: Yes (Death)
  Sender: FDA-Public Use
  Company Number: 2008EU000006

PATIENT
  Age: 49 Year
  Sex: Male

DRUGS (6)
  1. PROGRAF [Suspect]
     Indication: RENAL TRANSPLANT
     Dosage: 6 MG, BID, ORAL
     Route: 048
     Dates: start: 20070927, end: 20070929
  2. TOBRAMYCIN SULFATE [Suspect]
     Indication: RENAL TRANSPLANT
     Dosage: 240 MG, D, IV NOS
     Route: 042
     Dates: start: 20070927, end: 20070927
  3. CELLCEPT [Suspect]
     Indication: RENAL TRANSPLANT
     Dosage: 1 G, D, ORAL
     Route: 048
     Dates: start: 20070927, end: 20070929
  4. SIMULECT [Suspect]
     Indication: RENAL TRANSPLANT
     Dosage: D, IV NOD
     Route: 042
     Dates: start: 20070927, end: 20070927
  5. URBASON(METHYLPREDNISOLONE) [Suspect]
     Indication: RENAL TRANSPLANT
     Dosage: 100 MG, D, IV NOS
     Route: 042
     Dates: start: 20070927, end: 20070929
  6. GOBEMECINA(AMPICILLIN SODIUM) [Suspect]
     Indication: RENAL TRANSPLANT
     Dosage: 2 G, D, IV NOS
     Route: 042
     Dates: start: 20070927, end: 20070927

REACTIONS (4)
  - ACUTE RESPIRATORY DISTRESS SYNDROME [None]
  - GRAFT THROMBOSIS [None]
  - PANCREATITIS NECROTISING [None]
  - RENAL ARTERY STENOSIS [None]
